FAERS Safety Report 8943787 (Version 3)
Quarter: 2013Q1

REPORT INFORMATION
  Report Type: Spontaneous
  Country: AU (occurrence: AU)
  Receive Date: 20121203
  Receipt Date: 20130108
  Transmission Date: 20140127
  Serious: Yes (Hospitalization)
  Sender: FDA-Public Use
  Company Number: AU-GLAXOSMITHKLINE-B0848806A

PATIENT
  Age: 63 Year
  Sex: Female

DRUGS (17)
  1. SERETIDE [Suspect]
     Indication: ASTHMA
     Dosage: 2PUFF TWICE PER DAY
     Route: 055
     Dates: start: 20121106
  2. AVAPRO [Concomitant]
     Dosage: 300MG PER DAY
     Route: 048
  3. ZANIDIP [Concomitant]
     Dosage: 10MG TWICE PER DAY
     Route: 048
  4. ALDACTONE [Concomitant]
     Dosage: 50MG PER DAY
     Route: 048
  5. MINIPRESS [Concomitant]
     Dosage: 2MG TWICE PER DAY
  6. LASIX [Concomitant]
     Dosage: 80MG PER DAY
     Route: 048
  7. SOMAC [Concomitant]
     Dosage: 40MG PER DAY
     Route: 048
  8. ZOLOFT [Concomitant]
     Route: 048
  9. VITAMIN B [Concomitant]
     Dosage: 1TAB PER DAY
  10. VITAMIN C [Concomitant]
     Dosage: 1TAB PER DAY
  11. GLUCOSAMINE [Concomitant]
     Dosage: 1TAB PER DAY
  12. FISH OIL [Concomitant]
     Dosage: 1TAB PER DAY
  13. ZINC [Concomitant]
     Dosage: 1TAB PER DAY
  14. CARDIPRIN [Concomitant]
     Dosage: 100MG PER DAY
     Route: 048
  15. PRAZOSIN [Concomitant]
     Dosage: 2MG TWICE PER DAY
     Route: 048
  16. TRETINOIN CREAM [Concomitant]
     Route: 061
  17. SEREPAX [Concomitant]
     Indication: ANXIETY
     Route: 048

REACTIONS (4)
  - Arrhythmia [Recovered/Resolved]
  - Tremor [Unknown]
  - Overdose [Recovered/Resolved]
  - Product quality issue [Unknown]
